FAERS Safety Report 13446309 (Version 1)
Quarter: 2017Q2

REPORT INFORMATION
  Report Type: Spontaneous
  Country: US (occurrence: US)
  Receive Date: 20170417
  Receipt Date: 20170417
  Transmission Date: 20170830
  Serious: No
  Sender: FDA-Public Use
  Company Number: US-AMGEN-USASP2017055086

PATIENT
  Age: 62 Year
  Sex: Female

DRUGS (1)
  1. ENBREL [Suspect]
     Active Substance: ETANERCEPT
     Indication: RHEUMATOID ARTHRITIS
     Dosage: 50 MG, QWK
     Route: 058
     Dates: start: 20170206, end: 20170308

REACTIONS (10)
  - Haematocrit abnormal [Unknown]
  - Red cell distribution width abnormal [Unknown]
  - Mean cell haemoglobin [Unknown]
  - Hepatic enzyme abnormal [Unknown]
  - Haemoglobin abnormal [Unknown]
  - Platelet count abnormal [Unknown]
  - Red blood cell count abnormal [Unknown]
  - White blood cell disorder [Unknown]
  - Mean cell volume abnormal [Unknown]
  - Mean cell haemoglobin concentration abnormal [Unknown]

NARRATIVE: CASE EVENT DATE: 20170223
